FAERS Safety Report 25361367 (Version 2)
Quarter: 2025Q2

REPORT INFORMATION
  Report Type: Report from Study
  Country: IT (occurrence: IT)
  Receive Date: 20250527
  Receipt Date: 20250618
  Transmission Date: 20250716
  Serious: Yes (Hospitalization)
  Sender: ABBVIE
  Company Number: IT-ABBVIE-6296113

PATIENT
  Age: 71 Year
  Sex: Male
  Weight: 71 kg

DRUGS (8)
  1. SKYRIZI [Suspect]
     Active Substance: RISANKIZUMAB-RZAA
     Indication: Crohn^s disease
     Dosage: 360MG WITH OBI
     Route: 058
     Dates: start: 20250107, end: 20250403
  2. OMEPRAZOLE [Concomitant]
     Active Substance: OMEPRAZOLE
     Indication: Product used for unknown indication
  3. BETAMETHASONE SODIUM PHOSPHATE [Concomitant]
     Active Substance: BETAMETHASONE SODIUM PHOSPHATE
     Indication: Product used for unknown indication
  4. Levorag [Concomitant]
     Indication: Product used for unknown indication
  5. ASACOL [Concomitant]
     Active Substance: MESALAMINE
     Indication: Product used for unknown indication
  6. Dobetin [Concomitant]
     Indication: Product used for unknown indication
     Dosage: 5000 U?FREQUENCY:1 VIAL EVERY 3 MONTHS
  7. PREDNISONE [Concomitant]
     Active Substance: PREDNISONE
     Indication: Product used for unknown indication
  8. CHOLECALCIFEROL [Concomitant]
     Active Substance: CHOLECALCIFEROL
     Indication: Product used for unknown indication

REACTIONS (4)
  - Colectomy [Recovered/Resolved]
  - Weight decreased [Unknown]
  - Drug hypersensitivity [Unknown]
  - Post procedural erythema [Recovered/Resolved]

NARRATIVE: CASE EVENT DATE: 20250101
